FAERS Safety Report 4909472-7 (Version None)
Quarter: 2006Q1

REPORT INFORMATION
  Report Type: 
  Country: None (occurrence: None)
  Receive Date: 20060209
  Receipt Date: 20060209
  Transmission Date: 20060701
  Serious: Yes (Hospitalization)
  Sender: FDA-Public Use
  Company Number: None

PATIENT
  Sex: Male
  Weight: 87.8164 kg

DRUGS (9)
  1. DOXIL [Suspect]
     Indication: PERIPHERAL T-CELL LYMPHOMA UNSPECIFIED
     Dosage: 62 MG ONCE IV
     Route: 042
     Dates: start: 20060127
  2. ELSPAR [Concomitant]
  3. ALLOPURINOL [Concomitant]
  4. PROSCAR [Concomitant]
  5. ZOFRAN [Concomitant]
  6. ATIVAN [Concomitant]
  7. PREDNISONE [Concomitant]
  8. LEUCOVORIN [Concomitant]
  9. METHOTREXATE [Concomitant]

REACTIONS (3)
  - ACUTE MYOCARDIAL INFARCTION [None]
  - CORONARY ARTERY DISEASE [None]
  - CORONARY ARTERY STENOSIS [None]
